FAERS Safety Report 9029910 (Version 5)
Quarter: 2013Q2

REPORT INFORMATION
  Report Type: Report from Study
  Country: IT (occurrence: IT)
  Receive Date: 20130124
  Receipt Date: 20130607
  Transmission Date: 20140414
  Serious: Yes (Other)
  Sender: FDA-Public Use
  Company Number: IT-CELGENEUS-083-21880-13012879

PATIENT
  Age: 62 Year
  Sex: Male
  Weight: 70 kg

DRUGS (9)
  1. REVLIMID [Suspect]
     Indication: PLASMA CELL MYELOMA
     Route: 048
     Dates: start: 20090210, end: 20090527
  2. REVLIMID [Suspect]
     Route: 048
     Dates: start: 20110210, end: 20120213
  3. MELPHALAN [Suspect]
     Indication: PLASMA CELL MYELOMA
     Route: 065
     Dates: start: 20091016
  4. MELPHALAN [Suspect]
     Dosage: 350 MILLIGRAM
     Route: 065
     Dates: start: 20100208
  5. DEXAMETHASONE [Concomitant]
     Indication: PLASMA CELL MYELOMA
     Route: 065
     Dates: start: 20090210, end: 20090527
  6. DEXAMETHASONE [Concomitant]
     Route: 065
     Dates: start: 20110210, end: 20120213
  7. G-CSF [Concomitant]
     Dates: start: 20090823, end: 20090904
  8. ZOLEDRONIC ACID [Concomitant]
     Indication: PRODUCT USED FOR UNKNOWN INDICATION
     Route: 065
     Dates: start: 201201
  9. CYCLOPHOSPHAMIDE [Concomitant]
     Indication: PRODUCT USED FOR UNKNOWN INDICATION
     Dates: start: 20090818, end: 20090818

REACTIONS (1)
  - Lung neoplasm malignant [Not Recovered/Not Resolved]
